FAERS Safety Report 6225693-8 (Version None)
Quarter: 2009Q2

REPORT INFORMATION
  Report Type: 
  Country: None (occurrence: None)
  Receive Date: 20090612
  Receipt Date: 20090429
  Transmission Date: 20091009
  Serious: No
  Sender: FDA-Public Use
  Company Number: US-ABBOTT-09P-163-0570816-00

PATIENT
  Sex: Female
  Weight: 89.438 kg

DRUGS (8)
  1. HUMIRA [Suspect]
     Indication: CROHN'S DISEASE
     Route: 058
     Dates: start: 20090107, end: 20090401
  2. RITALIN [Concomitant]
     Indication: ATTENTION DEFICIT/HYPERACTIVITY DISORDER
  3. ZOLOFT [Concomitant]
     Indication: DEPRESSION
  4. INDERAL [Concomitant]
     Indication: MIGRAINE
  5. SEASONALE [Concomitant]
     Indication: CONTRACEPTION
  6. DIAZIDE [Concomitant]
     Indication: NEPHROLITHIASIS
  7. PREVACID [Concomitant]
     Indication: GASTROOESOPHAGEAL REFLUX DISEASE
  8. VITAMIN TAB [Concomitant]
     Indication: HYPOVITAMINOSIS

REACTIONS (3)
  - HERPES ZOSTER [None]
  - PRURITUS [None]
  - RASH [None]
